FAERS Safety Report 24735701 (Version 1)
Quarter: 2024Q4

REPORT INFORMATION
  Report Type: Spontaneous
  Country: US (occurrence: US)
  Receive Date: 20241216
  Receipt Date: 20241216
  Transmission Date: 20250115
  Serious: No
  Sender: ENDO
  Company Number: US-ENDO USA, INC.-2024-003277

PATIENT
  Sex: Female

DRUGS (1)
  1. MINOXIDIL [Suspect]
     Active Substance: MINOXIDIL
     Indication: Alopecia
     Dosage: UNK UNKNOWN, UNKNOWN
     Route: 065
     Dates: start: 202407, end: 202408

REACTIONS (5)
  - Depression [Unknown]
  - Fatigue [Unknown]
  - Weight increased [Unknown]
  - Drug ineffective for unapproved indication [Not Recovered/Not Resolved]
  - Off label use [Recovered/Resolved]

NARRATIVE: CASE EVENT DATE: 20240101
